FAERS Safety Report 8065153-5 (Version None)
Quarter: 2012Q1

REPORT INFORMATION
  Report Type: 
  Country: None (occurrence: None)
  Receive Date: 20120117
  Receipt Date: 20120110
  Transmission Date: 20120608
  Serious: Yes (Death)
  Sender: FDA-Public Use
  Company Number: 1000026989

PATIENT
  Age: 51 Year
  Sex: Female

DRUGS (4)
  1. LEVOTHROID [Suspect]
  2. BETA BLOCKER (NOS) (BETA BLOCKER (NOS)) [Suspect]
  3. BENZODIAZEPINE (NOS) (BENZOSIAZEPINE) [Suspect]
  4. BUPROPION HCL [Suspect]

REACTIONS (3)
  - CARDIAC ARREST [None]
  - COMPLETED SUICIDE [None]
  - RESPIRATORY ARREST [None]
